FAERS Safety Report 9917857 (Version 2)
Quarter: 2014Q1

REPORT INFORMATION
  Report Type: Spontaneous
  Country: FR (occurrence: FR)
  Receive Date: 20140221
  Receipt Date: 20140321
  Transmission Date: 20141002
  Serious: Yes (Hospitalization)
  Sender: FDA-Public Use
  Company Number: FR-GLAXOSMITHKLINE-B0968705A

PATIENT
  Age: 25 Year
  Sex: Female
  Weight: 58 kg

DRUGS (2)
  1. SERETIDE [Suspect]
     Indication: ASTHMA
     Dosage: 500MCG SEE DOSAGE TEXT
     Route: 055
     Dates: start: 20130712, end: 201402
  2. VENTOLINE [Concomitant]
     Indication: ASTHMA
     Dosage: 100MCG UNKNOWN

REACTIONS (8)
  - Blood cortisol decreased [Recovering/Resolving]
  - Blood corticotrophin decreased [Unknown]
  - Fatigue [Recovering/Resolving]
  - Depression [Not Recovered/Not Resolved]
  - Somnolence [Not Recovered/Not Resolved]
  - Hyperaesthesia [Recovering/Resolving]
  - C-reactive protein increased [Unknown]
  - Irritability [Recovering/Resolving]
